FAERS Safety Report 5765759-X (Version None)
Quarter: 2008Q2

REPORT INFORMATION
  Report Type: 
  Country: None (occurrence: None)
  Receive Date: 20080609
  Receipt Date: 20080609
  Transmission Date: 20081010
  Serious: Yes (Hospitalization)
  Sender: FDA-Public Use
  Company Number: None

PATIENT
  Age: 48 Year
  Sex: Female
  Weight: 87.3174 kg

DRUGS (11)
  1. ALIMTA [Suspect]
     Indication: NON-SMALL CELL LUNG CANCER
     Dosage: 760 MG IVPB
     Route: 042
     Dates: start: 20080305, end: 20080423
  2. GEMZAR [Suspect]
     Dosage: 2280 MG IVPB
     Route: 042
     Dates: start: 20080305, end: 20080423
  3. AVASTIN [Suspect]
     Indication: NON-SMALL CELL LUNG CANCER
     Dosage: 900 MG IVPB
     Route: 042
     Dates: start: 20080305, end: 20080423
  4. CARDIZEM [Concomitant]
  5. IBUROFEN [Concomitant]
  6. DARVOCET [Concomitant]
  7. PROZAC [Concomitant]
  8. LOVASTATIN [Concomitant]
  9. XANAX [Concomitant]
  10. SENNA [Concomitant]
  11. MARINOL [Concomitant]

REACTIONS (17)
  - ACIDOSIS [None]
  - ANAEMIA [None]
  - CLOSTRIDIUM DIFFICILE TOXIN TEST POSITIVE [None]
  - DEHYDRATION [None]
  - DIARRHOEA [None]
  - FATIGUE [None]
  - HEADACHE [None]
  - NAUSEA [None]
  - NEPHROGENIC DIABETES INSIPIDUS [None]
  - NEUTROPENIA [None]
  - PANCYTOPENIA [None]
  - RENAL FAILURE ACUTE [None]
  - RENAL TUBULAR ACIDOSIS [None]
  - RENAL TUBULAR NECROSIS [None]
  - SIMILAR REACTION ON PREVIOUS EXPOSURE TO DRUG [None]
  - URINE OUTPUT INCREASED [None]
  - VOMITING [None]
